FAERS Safety Report 7893572 (Version 3)
Quarter: 2013Q2

REPORT INFORMATION
  Report Type: Spontaneous
  Country: US (occurrence: US)
  Receive Date: 20110411
  Receipt Date: 20130424
  Transmission Date: 20140414
  Serious: Yes (Hospitalization)
  Sender: FDA-Public Use
  Company Number: US-US-EMD SERONO, INC.-7051951

PATIENT
  Age: 10 Year
  Sex: Female
  Weight: 29 kg

DRUGS (1)
  1. SAIZEN [(SOMATROPIN (RDNA ORIGIN) FOR INJECTION)] [Suspect]
     Indication: GROWTH HORMONE DEFICIENCY
     Dates: start: 20110203

REACTIONS (7)
  - Rheumatic fever [Unknown]
  - Chorea [Unknown]
  - Streptococcal infection [Unknown]
  - Acarodermatitis [Unknown]
  - Insomnia [Unknown]
  - Anxiety [Unknown]
  - Blood cholesterol abnormal [Unknown]
